FAERS Safety Report 19843049 (Version 1)
Quarter: 2021Q3

REPORT INFORMATION
  Report Type: Spontaneous
  Country: US (occurrence: US)
  Receive Date: 20210917
  Receipt Date: 20210917
  Transmission Date: 20211014
  Serious: No
  Sender: FDA-Public Use
  Company Number: US-BAXTER-2021BAX028850

PATIENT
  Age: 21 Year
  Sex: Male

DRUGS (1)
  1. TISSEEL [Suspect]
     Active Substance: FIBRINOGEN HUMAN\THROMBIN HUMAN
     Indication: PRODUCT USED FOR UNKNOWN INDICATION
     Route: 065
     Dates: start: 202106

REACTIONS (4)
  - Accidental exposure to product [Unknown]
  - Liquid product physical issue [Unknown]
  - Inflammation of wound [Recovered/Resolved]
  - Wound complication [Unknown]

NARRATIVE: CASE EVENT DATE: 202106
